FAERS Safety Report 10144148 (Version 1)
Quarter: 2014Q2

REPORT INFORMATION
  Report Type: Spontaneous
  Country: US (occurrence: US)
  Receive Date: 20140430
  Receipt Date: 20140430
  Transmission Date: 20141212
  Serious: Yes (Other)
  Sender: FDA-Public Use
  Company Number: PHHY2014US049556

PATIENT
  Age: 61 Year
  Sex: Female

DRUGS (2)
  1. OXALIPLATIN [Suspect]
     Indication: CHEMOTHERAPY
     Dosage: 100MG/M2 OVER TWO HOURS, DAY 1, EVERY THREE WEEKS
  2. CAPECITABINE [Suspect]
     Indication: CHEMOTHERAPY
     Dosage: 850MG/M2 ORALLY TWICE DAILY, DAYS 1 TO 14, EVERY THREE WEEKS
     Route: 048

REACTIONS (3)
  - Blindness transient [Unknown]
  - Thrombocytopenia [Unknown]
  - Drug effect incomplete [Unknown]
